FAERS Safety Report 17846671 (Version 1)
Quarter: 2020Q2

REPORT INFORMATION
  Report Type: Spontaneous
  Country: US (occurrence: US)
  Receive Date: 20200601
  Receipt Date: 20200601
  Transmission Date: 20200714
  Serious: Yes (Death)
  Sender: FDA-Public Use
  Company Number: US-CELGENEUS-USA-20200508935

PATIENT
  Sex: Male

DRUGS (2)
  1. ABRAXANE [Suspect]
     Active Substance: PACLITAXEL
     Indication: PANCREATIC CARCINOMA
  2. ABRAXANE [Suspect]
     Active Substance: PACLITAXEL
     Indication: COLON CANCER
     Dosage: 214 MILLIGRAM
     Route: 065

REACTIONS (1)
  - Death [Fatal]
